FAERS Safety Report 21308387 (Version 1)
Quarter: 2022Q3

REPORT INFORMATION
  Report Type: Spontaneous
  Country: US (occurrence: US)
  Receive Date: 20220908
  Receipt Date: 20220908
  Transmission Date: 20221027
  Serious: Yes (Other)
  Sender: FDA-Public Use
  Company Number: US-MYLANLABS-2022M1092271

PATIENT
  Age: 18 Year
  Sex: Female

DRUGS (4)
  1. CINACALCET HYDROCHLORIDE [Suspect]
     Active Substance: CINACALCET HYDROCHLORIDE
     Indication: Hypercalcaemia
     Dosage: 30 MILLIGRAM, BID (WITH UP TITRATION TO TWICE DAILY)
     Route: 065
  2. CALCITONIN SALMON [Suspect]
     Active Substance: CALCITONIN SALMON
     Indication: Hypercalcaemia
     Dosage: UNK
     Route: 065
  3. PAMIDRONATE [Suspect]
     Active Substance: PAMIDRONATE DISODIUM
     Indication: Hypercalcaemia
     Dosage: UNK
     Route: 065
  4. PREDNISONE [Suspect]
     Active Substance: PREDNISONE
     Indication: Hypercalcaemia
     Dosage: UNK
     Route: 065

REACTIONS (3)
  - Drug ineffective [Unknown]
  - Hypocalcaemia [Unknown]
  - Maternal exposure during pregnancy [Unknown]
